FAERS Safety Report 6982330-2 (Version None)
Quarter: 2010Q3

REPORT INFORMATION
  Report Type: 
  Country: None (occurrence: None)
  Receive Date: 20100914
  Receipt Date: 20100429
  Transmission Date: 20110219
  Serious: No
  Sender: FDA-Public Use
  Company Number: US-PFIZER INC-2009291858

PATIENT
  Sex: Female
  Weight: 115.65 kg

DRUGS (7)
  1. LYRICA [Suspect]
     Indication: FIBROMYALGIA
     Dosage: 100 MG, 2X/DAY
     Route: 048
     Dates: start: 20080308
  2. MULTI-VITAMINS [Concomitant]
     Dosage: UNK
  3. CALCIUM [Concomitant]
     Dosage: UNK
  4. VITAMIN D [Concomitant]
     Dosage: UNK
  5. MONTELUKAST [Concomitant]
     Dosage: UNK
  6. WELLBUTRIN [Concomitant]
     Dosage: 2 MG, UNK
  7. LEXAPRO [Concomitant]
     Dosage: UNK

REACTIONS (6)
  - ABDOMINAL DISTENSION [None]
  - BLOOD CHOLESTEROL ABNORMAL [None]
  - HYPERTENSION [None]
  - OVERWEIGHT [None]
  - WEIGHT DECREASED [None]
  - WEIGHT INCREASED [None]
